FAERS Safety Report 7270831-1 (Version None)
Quarter: 2011Q1

REPORT INFORMATION
  Report Type: 
  Country: None (occurrence: None)
  Receive Date: 20110125
  Receipt Date: 20110125
  Transmission Date: 20110831
  Serious: Yes (Hospitalization)
  Sender: FDA-Public Use
  Company Number: None

PATIENT
  Sex: Male
  Weight: 60.3284 kg

DRUGS (1)
  1. BACTRIM DS [Suspect]
     Indication: STAPHYLOCOCCAL INFECTION
     Dosage: 1 TAB TWICE A DAY PO
     Route: 048
     Dates: start: 20101004, end: 20101013

REACTIONS (3)
  - SEPSIS [None]
  - RENAL FAILURE ACUTE [None]
  - DEHYDRATION [None]
